FAERS Safety Report 6562430-1 (Version None)
Quarter: 2010Q1

REPORT INFORMATION
  Report Type: 
  Country: None (occurrence: None)
  Receive Date: 20100130
  Receipt Date: 20091110
  Transmission Date: 20100710
  Serious: No
  Sender: FDA-Public Use
  Company Number: US-ABBOTT-09P-163-0608640-00

PATIENT
  Sex: Female
  Weight: 142.56 kg

DRUGS (1)
  1. HUMIRA [Suspect]
     Indication: CROHN'S DISEASE
     Dosage: DAY 1; 160MG
     Dates: start: 20091028

REACTIONS (4)
  - CHROMATURIA [None]
  - DYSURIA [None]
  - FLANK PAIN [None]
  - URINARY TRACT INFECTION [None]
